FAERS Safety Report 9919069 (Version 1)
Quarter: 2014Q1

REPORT INFORMATION
  Report Type: Spontaneous
  Country: US (occurrence: US)
  Receive Date: 20140224
  Receipt Date: 20140224
  Transmission Date: 20141002
  Serious: No
  Sender: FDA-Public Use
  Company Number: US-BAYER-2014-028401

PATIENT
  Age: 73 Year
  Sex: Female

DRUGS (1)
  1. ALEVE TABLET [Suspect]
     Indication: MYALGIA
     Dosage: 2 DF IN MORNING AND 1 DF IN EVENING, BID
     Route: 048
     Dates: start: 201402, end: 20140219

REACTIONS (1)
  - Incorrect drug administration duration [None]
